FAERS Safety Report 5388721-8 (Version None)
Quarter: 2007Q3

REPORT INFORMATION
  Report Type: 
  Country: None (occurrence: None)
  Receive Date: 20070716
  Receipt Date: 20070706
  Transmission Date: 20080115
  Serious: Yes (Other)
  Sender: FDA-Public Use
  Company Number: US-MERCK-0704USA06123

PATIENT
  Age: 62 Year
  Sex: Male
  Weight: 122 kg

DRUGS (6)
  1. JANUVIA [Suspect]
     Indication: TYPE 2 DIABETES MELLITUS
     Route: 048
     Dates: start: 20061201
  2. PLAVIX [Concomitant]
     Route: 065
  3. VYTORIN [Concomitant]
     Route: 048
  4. TRICOR [Concomitant]
     Route: 065
  5. ACTOS [Concomitant]
     Route: 065
  6. TOPROL-XL [Concomitant]
     Route: 048

REACTIONS (2)
  - DRUG INEFFECTIVE [None]
  - WEIGHT INCREASED [None]
